FAERS Safety Report 9355626 (Version 2)
Quarter: 2013Q3

REPORT INFORMATION
  Report Type: Not Available
  Country: FR (occurrence: FR)
  Receive Date: 20130619
  Receipt Date: 20130709
  Transmission Date: 20140515
  Serious: Yes (Life-Threatening, Hospitalization, Disabling)
  Sender: FDA-Public Use
  Company Number: FR-ASTELLAS-2013EU005201

PATIENT
  Age: 87 Year
  Sex: Male

DRUGS (6)
  1. VESICARE [Suspect]
     Indication: HYPERTONIC BLADDER
     Dosage: 1 DF, UID/QD
     Route: 048
  2. XARELTO [Suspect]
     Indication: ARRHYTHMIA
     Dosage: 1 DF, UID/QD
     Route: 048
  3. CRESTOR [Suspect]
     Indication: HYPERCHOLESTEROLAEMIA
     Dosage: 1 DF, UID/QD
     Route: 048
  4. ACUILIX [Suspect]
     Indication: HYPERTENSION
     Dosage: 1 DF, UID/QD
     Route: 048
  5. TOCOPHEROL /00110502/ [Suspect]
     Dosage: 160 MG, UID/QD
     Route: 048
  6. LANSOPRAZOLE [Suspect]
     Indication: GASTROOESOPHAGEAL REFLUX DISEASE
     Dosage: 1 DF, UID/QD
     Route: 048

REACTIONS (1)
  - Ischaemic stroke [Recovered/Resolved with Sequelae]
